FAERS Safety Report 17312740 (Version 2)
Quarter: 2020Q1

REPORT INFORMATION
  Report Type: Report from Study
  Country: None (occurrence: PT)
  Receive Date: 20200123
  Receipt Date: 20200203
  Transmission Date: 20200409
  Serious: Yes (Other)
  Sender: FDA-Public Use
  Company Number: PT-ABBVIE-20K-130-3246559-00

PATIENT
  Age: 56 Year
  Sex: Female

DRUGS (4)
  1. PAROXETINE. [Concomitant]
     Active Substance: PAROXETINE
     Indication: DEPRESSION
     Dosage: 2 TABLETS IN THE MORNING
     Route: 048
     Dates: start: 2017
  2. ADT (AMITRIPTYLINE) [Concomitant]
     Active Substance: AMITRIPTYLINE
     Indication: DEPRESSION
     Dosage: 2 TABLETS AT BED TIME
     Route: 048
     Dates: start: 2017
  3. LEXOTAN [Concomitant]
     Active Substance: BROMAZEPAM
     Indication: DEPRESSION
     Dosage: 1 TABLET IN MORNING + 1 TABLET AT NIGHT
     Route: 048
     Dates: start: 2017
  4. HUMIRA [Suspect]
     Active Substance: ADALIMUMAB
     Indication: ANKYLOSING SPONDYLITIS
     Route: 058
     Dates: start: 20180226, end: 201912

REACTIONS (2)
  - White blood cell count increased [Recovered/Resolved]
  - Parvovirus infection [Recovered/Resolved]

NARRATIVE: CASE EVENT DATE: 201912
